FAERS Safety Report 9120255 (Version 2)
Quarter: 2013Q1

REPORT INFORMATION
  Report Type: Spontaneous
  Country: US (occurrence: US)
  Receive Date: 20130226
  Receipt Date: 20130315
  Transmission Date: 20140127
  Serious: Yes (Other)
  Sender: FDA-Public Use
  Company Number: US-JNJFOC-20130210864

PATIENT
  Age: 65 Year
  Sex: Male
  Weight: 80.74 kg

DRUGS (6)
  1. XARELTO [Suspect]
     Indication: CEREBROVASCULAR ACCIDENT PROPHYLAXIS
     Route: 048
     Dates: start: 20130207
  2. XARELTO [Suspect]
     Indication: ATRIAL FIBRILLATION
     Route: 048
     Dates: start: 20130207
  3. PROPAFENONE [Concomitant]
     Indication: ARRHYTHMIA
     Route: 048
     Dates: start: 201302
  4. TIKOSYN [Concomitant]
     Indication: ATRIAL FIBRILLATION
     Route: 065
     Dates: start: 2005
  5. DILTIAZEM [Concomitant]
     Indication: ATRIAL FIBRILLATION
     Route: 065
  6. OMEPRAZOLE [Concomitant]
     Route: 065

REACTIONS (3)
  - Bursitis [Recovering/Resolving]
  - Joint swelling [Recovering/Resolving]
  - Contusion [Recovering/Resolving]
